FAERS Safety Report 7356740-8 (Version None)
Quarter: 2011Q1

REPORT INFORMATION
  Report Type: 
  Country: None (occurrence: None)
  Receive Date: 20110316
  Receipt Date: 20110303
  Transmission Date: 20110831
  Serious: Yes (Other)
  Sender: FDA-Public Use
  Company Number: US-RB-022435-11

PATIENT
  Age: 78 Year
  Sex: Female

DRUGS (1)
  1. MUCINEX DM [Suspect]
     Route: 048
     Dates: start: 20110201

REACTIONS (4)
  - INSOMNIA [None]
  - ABNORMAL DREAMS [None]
  - NIGHTMARE [None]
  - HALLUCINATION [None]
